FAERS Safety Report 13280414 (Version 1)
Quarter: 2017Q1

REPORT INFORMATION
  Report Type: Spontaneous
  Country: FR (occurrence: FR)
  Receive Date: 20170301
  Receipt Date: 20170301
  Transmission Date: 20170428
  Serious: Yes (Hospitalization)
  Sender: FDA-Public Use
  Company Number: FR-ORION CORPORATION ORION PHARMA-TREX2017-0661

PATIENT
  Age: 75 Year
  Sex: Female

DRUGS (9)
  1. ZYMAD [Concomitant]
     Active Substance: CHOLECALCIFEROL
     Dosage: STRENGTH: 80 000 IU
     Route: 048
  2. ECONAZOLE [Concomitant]
     Active Substance: ECONAZOLE
     Route: 065
  3. TRANSIPEG [Concomitant]
     Active Substance: POLYETHYLENE GLYCOL 3350
     Route: 065
  4. LANSOPRAZOLE. [Concomitant]
     Active Substance: LANSOPRAZOLE
     Route: 065
  5. BACLOFEN. [Suspect]
     Active Substance: BACLOFEN
     Indication: MULTIPLE SCLEROSIS
     Route: 048
     Dates: end: 20170124
  6. TEGRETOL [Suspect]
     Active Substance: CARBAMAZEPINE
     Indication: MULTIPLE SCLEROSIS
     Route: 048
     Dates: end: 20170124
  7. XARELTO [Concomitant]
     Active Substance: RIVAROXABAN
     Dosage: STRENGTH: 20 MG
     Route: 065
     Dates: start: 20160901, end: 20170124
  8. SPECIAFOLDINE [Concomitant]
     Active Substance: FOLIC ACID
     Route: 065
  9. IMETH [Suspect]
     Active Substance: METHOTREXATE SODIUM
     Indication: RHEUMATOID ARTHRITIS
     Dosage: STRENGTH: 10 MG
     Route: 048
     Dates: end: 20170124

REACTIONS (3)
  - Toxicity to various agents [Unknown]
  - Pancytopenia [Unknown]
  - Infection [Unknown]

NARRATIVE: CASE EVENT DATE: 201701
